FAERS Safety Report 4576070-7 (Version None)
Quarter: 2005Q1

REPORT INFORMATION
  Report Type: 
  Country: None (occurrence: None)
  Receive Date: 20050209
  Receipt Date: 20050125
  Transmission Date: 20050727
  Serious: Yes (Other)
  Sender: FDA-Public Use
  Company Number: PHNU2005DE00681

PATIENT
  Age: 24 Year
  Sex: Male
  Weight: 75 kg

DRUGS (5)
  1. PREDNI-M-TABLINEN [Suspect]
     Indication: GLOMERULONEPHRITIS
     Dosage: 0.25 DF, QD
     Route: 048
     Dates: start: 19990801
  2. AGOPTON [Concomitant]
  3. SANDIMMUNE [Suspect]
     Indication: GLOMERULONEPHRITIS CHRONIC
     Dosage: 175 MG, BID
     Route: 048
     Dates: start: 19990801, end: 20050115
  4. NEXIUM [Suspect]
     Indication: GASTRITIS
     Dosage: UNK, PRN
     Route: 048
  5. ATACAND [Suspect]
     Indication: HYPERTENSION
     Dosage: 1 DF, QD

REACTIONS (4)
  - BLOOD CREATINE PHOSPHOKINASE INCREASED [None]
  - LIVER FUNCTION TEST ABNORMAL [None]
  - MYALGIA [None]
  - RHABDOMYOLYSIS [None]
